FAERS Safety Report 7495917-8 (Version None)
Quarter: 2011Q2

REPORT INFORMATION
  Report Type: 
  Country: None (occurrence: None)
  Receive Date: 20110523
  Receipt Date: 20100503
  Transmission Date: 20111010
  Serious: Yes (Other)
  Sender: FDA-Public Use
  Company Number: US-PFIZER INC-2010056301

PATIENT
  Sex: Female

DRUGS (1)
  1. ELLENCE [Suspect]
     Indication: NEOPLASM MALIGNANT
     Dosage: UNK

REACTIONS (3)
  - VEIN PAIN [None]
  - VEIN DISORDER [None]
  - VEIN DISCOLOURATION [None]
